FAERS Safety Report 8554025-5 (Version None)
Quarter: 2012Q3

REPORT INFORMATION
  Report Type: 
  Country: None (occurrence: None)
  Receive Date: 20120731
  Receipt Date: 20120726
  Transmission Date: 20120928
  Serious: Yes (Other)
  Sender: FDA-Public Use
  Company Number: CZ-009507513-1207CZE011118

PATIENT

DRUGS (2)
  1. CORTICOSTEROIDS (UNSPECIFIED) [Concomitant]
  2. EMEND [Suspect]
     Indication: PROPHYLAXIS OF NAUSEA AND VOMITING
     Route: 048

REACTIONS (1)
  - ACUTE PSYCHOSIS [None]
